FAERS Safety Report 8833119 (Version 1)
Quarter: 2012Q4

REPORT INFORMATION
  Report Type: Report from Study
  Country: CA (occurrence: CA)
  Receive Date: 20121010
  Receipt Date: 20121010
  Transmission Date: 20130627
  Serious: Yes (Other)
  Sender: FDA-Public Use
  Company Number: CA-JNJFOC-20121000537

PATIENT
  Age: 39 Year
  Sex: Female
  Weight: 87.9 kg

DRUGS (9)
  1. REMICADE [Suspect]
     Indication: CROHN^S DISEASE
     Route: 042
     Dates: start: 201106
  2. ASACOL [Concomitant]
     Route: 065
  3. IMURAN [Concomitant]
     Route: 065
  4. EFFEXOR [Concomitant]
     Route: 065
  5. TRAZODONE [Concomitant]
     Route: 065
  6. TYLENOL [Concomitant]
     Route: 065
  7. SYMBICORT [Concomitant]
     Route: 065
  8. VITAMIN [Concomitant]
     Route: 065
  9. SALOFALK ENEMA [Concomitant]
     Route: 065

REACTIONS (2)
  - Polyp [Unknown]
  - Colitis [Unknown]
